FAERS Safety Report 5914013-1 (Version None)
Quarter: 2008Q4

REPORT INFORMATION
  Report Type: 
  Country: None (occurrence: None)
  Receive Date: 20081009
  Receipt Date: 20080929
  Transmission Date: 20090506
  Serious: Yes (Other)
  Sender: FDA-Public Use
  Company Number: JP-BRISTOL-MYERS SQUIBB COMPANY-14358576

PATIENT
  Age: 55 Year
  Sex: Female

DRUGS (9)
  1. ABILIFY [Suspect]
     Indication: SCHIZOPHRENIA
     Dosage: 01AUG08-07AUG08(3MG);08AUG08-04SEP08(6MG);05SEP08-11SEP08(12MG);12SEP08-25SEP08(18MG)
     Route: 048
     Dates: start: 20080801, end: 20080925
  2. RISPERDAL [Suspect]
     Indication: SCHIZOPHRENIA
     Route: 048
     Dates: start: 20080918, end: 20080925
  3. LEVOTHYROXINE SODIUM [Concomitant]
  4. NOVORAPID [Concomitant]
     Dosage: INJECTION
  5. LANTUS [Concomitant]
     Dosage: INJECTION
  6. LENDORMIN [Concomitant]
     Dosage: TABLET
     Dates: start: 20080430
  7. LULLAN [Concomitant]
     Dosage: TABLET
  8. LORAZEPAM [Concomitant]
     Dosage: TABLET
     Dates: start: 20080606
  9. AKINETON [Concomitant]
     Dates: start: 20080815

REACTIONS (3)
  - DELUSION [None]
  - HALLUCINATION [None]
  - SEDATION [None]
